FAERS Safety Report 17832307 (Version 1)
Quarter: 2020Q2

REPORT INFORMATION
  Report Type: Spontaneous
  Country: US (occurrence: US)
  Receive Date: 20200527
  Receipt Date: 20200527
  Transmission Date: 20200714
  Serious: No
  Sender: FDA-Public Use
  Company Number: US-ROCHE-2440298

PATIENT
  Age: 35 Year
  Sex: Female

DRUGS (2)
  1. OCREVUS [Suspect]
     Active Substance: OCRELIZUMAB
     Indication: RELAPSING-REMITTING MULTIPLE SCLEROSIS
     Route: 042
     Dates: start: 20181128
  2. ELEZANUMAB. [Concomitant]
     Active Substance: ELEZANUMAB
     Indication: MULTIPLE SCLEROSIS
     Dosage: UNKNOWN
     Route: 065

REACTIONS (13)
  - Vision blurred [Unknown]
  - Decreased appetite [Unknown]
  - Stress [Unknown]
  - Fatigue [Unknown]
  - Asthenia [Unknown]
  - Muscle spasticity [Unknown]
  - Eye pain [Unknown]
  - Gait disturbance [Unknown]
  - Bladder disorder [Unknown]
  - Tremor [Unknown]
  - Paraesthesia [Unknown]
  - Malaise [Unknown]
  - Hypoaesthesia [Unknown]

NARRATIVE: CASE EVENT DATE: 20200203
